FAERS Safety Report 6859902-9 (Version None)
Quarter: 2010Q3

REPORT INFORMATION
  Report Type: 
  Country: None (occurrence: None)
  Receive Date: 20100720
  Receipt Date: 20100701
  Transmission Date: 20110219
  Serious: Yes (Hospitalization, Other)
  Sender: FDA-Public Use
  Company Number: IT-SHIRE-SPV1-2010-01219

PATIENT
  Sex: Female

DRUGS (4)
  1. FOSRENOL [Suspect]
     Indication: HYPERPHOSPHATAEMIA
     Dosage: 1000 MG, 2X/DAY:BID
     Route: 048
     Dates: start: 20100412, end: 20100620
  2. KETOROLAC TROMETHAMINE [Suspect]
     Indication: HEADACHE
     Dosage: 15 MG, AS REQ'D
     Route: 042
     Dates: start: 20100616, end: 20100616
  3. HEPARIN SODIUM [Concomitant]
     Indication: HAEMODIALYSIS
     Dosage: 500 UNK, UNK
     Route: 010
     Dates: start: 20100621, end: 20100621
  4. TACHIPIRINA [Concomitant]
     Dosage: 500 MG, UNK
     Route: 048
     Dates: start: 20100618, end: 20100618

REACTIONS (4)
  - GASTRIC ULCER [None]
  - HAEMATEMESIS [None]
  - HYPOTENSION [None]
  - MELAENA [None]
